FAERS Safety Report 5511951-9 (Version None)
Quarter: 2007Q4

REPORT INFORMATION
  Report Type: 
  Country: None (occurrence: None)
  Receive Date: 20071109
  Receipt Date: 20071030
  Transmission Date: 20080405
  Serious: Yes (Other)
  Sender: FDA-Public Use
  Company Number: US-PFIZER INC-2007092461

PATIENT
  Sex: Female

DRUGS (3)
  1. XALATAN [Suspect]
  2. PROTONIX [Suspect]
  3. ALTACE [Suspect]

REACTIONS (7)
  - DRY MOUTH [None]
  - DYSGEUSIA [None]
  - ERUCTATION [None]
  - RETINAL HAEMORRHAGE [None]
  - STOMATITIS [None]
  - TONGUE DISCOLOURATION [None]
  - VISUAL ACUITY REDUCED [None]
